FAERS Safety Report 23515752 (Version 3)
Quarter: 2025Q4

REPORT INFORMATION
  Report Type: Report from Study
  Country: EU (occurrence: EU)
  Receive Date: 20240213
  Receipt Date: 20251007
  Transmission Date: 20260117
  Serious: Yes (Other)
  Sender: TAKEDA
  Company Number: EU-TAKEDA-2024TUS012391

PATIENT
  Age: 13 Year
  Sex: Male

DRUGS (13)
  1. TEDUGLUTIDE [Suspect]
     Active Substance: TEDUGLUTIDE
     Indication: Short-bowel syndrome
     Dosage: 1.4 MILLIGRAM, QD
     Dates: start: 20171109, end: 20180910
  2. TEDUGLUTIDE [Suspect]
     Active Substance: TEDUGLUTIDE
     Dosage: 1.6 MILLIGRAM, QD
     Dates: start: 20180910, end: 20190114
  3. TEDUGLUTIDE [Suspect]
     Active Substance: TEDUGLUTIDE
     Dosage: 1.8 MILLIGRAM, QD
     Dates: start: 20190114, end: 20210614
  4. TEDUGLUTIDE [Suspect]
     Active Substance: TEDUGLUTIDE
     Dosage: 2.2 MILLIGRAM, QD
     Dates: start: 20210614, end: 20230315
  5. TEDUGLUTIDE [Suspect]
     Active Substance: TEDUGLUTIDE
     Dosage: 2.4 MILLIGRAM, QD
     Dates: start: 20230315, end: 20231030
  6. TEDUGLUTIDE [Suspect]
     Active Substance: TEDUGLUTIDE
     Dosage: 2.5 MILLIGRAM, QD
     Dates: start: 20231030, end: 20240205
  7. TEDUGLUTIDE [Suspect]
     Active Substance: TEDUGLUTIDE
     Dosage: 2.6 MILLIGRAM, QD
     Dates: start: 20240205, end: 20250611
  8. TEDUGLUTIDE [Suspect]
     Active Substance: TEDUGLUTIDE
     Dosage: 2.8 MILLIGRAM, QD
     Dates: start: 20250611
  9. ENTOCORT [Concomitant]
     Active Substance: BUDESONIDE
     Indication: Haemorrhage prophylaxis
     Dosage: 1 INTERNATIONAL UNIT, QD
     Dates: start: 20210315, end: 20210405
  10. ENTOCORT [Concomitant]
     Active Substance: BUDESONIDE
     Indication: Proctitis
     Dosage: 2 INTERNATIONAL UNIT, 2/WEEK
     Dates: start: 20220912
  11. CALCIFEDIOL [Concomitant]
     Active Substance: CALCIFEDIOL
     Indication: Prophylaxis
     Dosage: 266 MICROGRAM, Q2WEEKS
     Dates: start: 20220307, end: 20220606
  12. CALCIFEDIOL [Concomitant]
     Active Substance: CALCIFEDIOL
     Indication: Vitamin supplementation
     Dosage: 266 MICROGRAM, Q2WEEKS
     Dates: start: 20220912, end: 20240527
  13. Salvacolina [Concomitant]
     Indication: Diarrhoea
     Dosage: 2 MILLIGRAM, TID
     Dates: start: 20200907

REACTIONS (1)
  - Biliary dilatation [Not Recovered/Not Resolved]

NARRATIVE: CASE EVENT DATE: 20230315
